FAERS Safety Report 13303866 (Version 10)
Quarter: 2025Q1

REPORT INFORMATION
  Report Type: Report from Study
  Country: CN (occurrence: CN)
  Receive Date: 20170307
  Receipt Date: 20250313
  Transmission Date: 20250409
  Serious: Yes (Other)
  Sender: ROCHE
  Company Number: CN-ROCHE-1727941

PATIENT
  Age: 61 Year
  Sex: Male
  Weight: 60 kg

DRUGS (3)
  1. AVASTIN [Suspect]
     Active Substance: BEVACIZUMAB
     Indication: Rectal cancer
     Dosage: FORM OF ADMIN: 100 MG
     Route: 042
     Dates: start: 20150215, end: 20160205
  2. AVASTIN [Suspect]
     Active Substance: BEVACIZUMAB
     Dosage: FORM OF ADMIN: 100 MG
     Route: 042
     Dates: end: 20170126
  3. AVASTIN [Suspect]
     Active Substance: BEVACIZUMAB
     Dosage: FORM OF ADMIN: 100 MG
     Route: 042

REACTIONS (13)
  - Anal cyst [Recovered/Resolved]
  - Anal ulcer [Unknown]
  - Postoperative wound infection [Unknown]
  - Incision site ulcer [Unknown]
  - Enteritis [Unknown]
  - Gastroenteritis radiation [Unknown]
  - Hypertension [Unknown]
  - Nasopharyngitis [Unknown]
  - Tonsillar inflammation [Unknown]
  - Blood potassium increased [Unknown]
  - COVID-19 [Unknown]
  - Tooth extraction [Unknown]
  - Toothache [Unknown]

NARRATIVE: CASE EVENT DATE: 20160101
